FAERS Safety Report 5307560-7 (Version None)
Quarter: 2007Q2

REPORT INFORMATION
  Report Type: 
  Country: None (occurrence: None)
  Receive Date: 20070425
  Receipt Date: 20070416
  Transmission Date: 20071010
  Serious: Yes (Hospitalization)
  Sender: FDA-Public Use
  Company Number: NL-ELI_LILLY_AND_COMPANY-NL200703005231

PATIENT
  Age: 10 Year
  Sex: Male
  Weight: 42.5 kg

DRUGS (6)
  1. STRATTERA [Suspect]
     Indication: PSYCHOMOTOR HYPERACTIVITY
     Dosage: 18 MG, UNKNOWN
     Route: 065
     Dates: start: 20060529
  2. STRATTERA [Suspect]
     Dosage: 25 MG, UNKNOWN
     Route: 065
     Dates: start: 20060607
  3. STRATTERA [Suspect]
     Dosage: 40 MG, UNKNOWN
     Route: 065
     Dates: start: 20060614
  4. STRATTERA [Suspect]
     Dosage: 60 MG, UNKNOWN
     Route: 065
     Dates: start: 20060619
  5. STRATTERA [Suspect]
     Dosage: 40 MG, UNKNOWN
     Route: 065
     Dates: start: 20060627, end: 20060601
  6. METHYLPHENIDATE HCL [Concomitant]
     Indication: TIC
     Dosage: UNK, UNKNOWN
     Route: 065
     Dates: start: 20050901

REACTIONS (2)
  - ABNORMAL BEHAVIOUR [None]
  - TIC [None]
